FAERS Safety Report 6226711-3 (Version None)
Quarter: 2009Q2

REPORT INFORMATION
  Report Type: 
  Country: None (occurrence: None)
  Receive Date: 20090612
  Receipt Date: 20090604
  Transmission Date: 20091009
  Serious: Yes (Hospitalization)
  Sender: FDA-Public Use
  Company Number: FR-ROCHE-636626

PATIENT
  Sex: Female
  Weight: 80 kg

DRUGS (9)
  1. MYCOPHENOLATE MOFETIL [Suspect]
     Indication: DRUG USE FOR UNKNOWN INDICATION
     Dosage: TDD: 500X2
     Route: 065
     Dates: start: 20060401
  2. METHOXY POLYETHYLENE GLYCOL-EPOETIN BETA [Suspect]
     Dosage: FORM: PFS, LAST DOSE PRIOR TO SAE: 17 MAR 2009
     Route: 058
     Dates: start: 20090217
  3. CORTANCYL [Suspect]
     Indication: DRUG USE FOR UNKNOWN INDICATION
     Route: 065
     Dates: start: 20060401
  4. PLAQUENIL [Suspect]
     Indication: DRUG USE FOR UNKNOWN INDICATION
     Dosage: DRUG PLAQUENIL SJ/7=5DAY/7, TDD: 200X2/DAY
     Route: 065
     Dates: start: 20060401
  5. ZOPICLONE [Concomitant]
     Dosage: TDD: 1/DAY
  6. ACEBUTOLOL [Concomitant]
     Dosage: TDD: 200 1/2 DAILY
     Dates: start: 20060401
  7. COAPROVEL [Concomitant]
     Dates: start: 20060401
  8. LYRICA [Concomitant]
     Dosage: TDD: 100X2/DAY
     Dates: start: 20070101
  9. FUROSEMIDE [Concomitant]
     Dosage: TDD: 20X2/DAY
     Dates: start: 20060401

REACTIONS (1)
  - BRONCHIAL DISORDER [None]
